FAERS Safety Report 13773186 (Version 1)
Quarter: 2017Q3

REPORT INFORMATION
  Report Type: Spontaneous
  Country: DE (occurrence: DE)
  Receive Date: 20170720
  Receipt Date: 20170720
  Transmission Date: 20171127
  Serious: Yes (Hospitalization, Disabling)
  Sender: FDA-Public Use
  Company Number: DE-TEVA-787251GER

PATIENT
  Sex: Female

DRUGS (4)
  1. AMLODIPIN 5MG [Concomitant]
     Active Substance: AMLODIPINE BESYLATE
     Dosage: 5 MILLIGRAM DAILY;
  2. ARCOXIA 30MG [Concomitant]
     Indication: PAIN
     Dosage: AS REQUIRED
  3. NITROFURANTOIN-RATIOPHARM 100 MG RETARDKAPSELN [Suspect]
     Active Substance: NITROFURANTOIN
     Indication: URINARY TRACT INFECTION
     Dosage: 100 MILLIGRAM DAILY;
     Dates: start: 2009, end: 2016
  4. RAMIPRIL COMP. 5/25MG [Concomitant]
     Dosage: 1 DOSAGE FORMS DAILY; 1 DOSAGE FORM CONTAINS 5MG RAMIPRIL AND 25MG HYDROCHLOROTHIAZIDE

REACTIONS (6)
  - Central nervous system lesion [Unknown]
  - Headache [Unknown]
  - Paraesthesia [Unknown]
  - Vertigo [Unknown]
  - Cerebral infarction [Unknown]
  - Nervous system disorder [Unknown]

NARRATIVE: CASE EVENT DATE: 2016
